FAERS Safety Report 15000848 (Version 1)
Quarter: 2018Q2

REPORT INFORMATION
  Report Type: Report from Study
  Country: US (occurrence: US)
  Receive Date: 20180612
  Receipt Date: 20180612
  Transmission Date: 20180711
  Serious: Yes (Death, Hospitalization)
  Sender: FDA-Public Use
  Company Number: US-JNJFOC-20180603098

PATIENT
  Age: 72 Year
  Sex: Male

DRUGS (4)
  1. IMBRUVICA [Concomitant]
     Active Substance: IBRUTINIB
     Indication: NON-HODGKIN^S LYMPHOMA
     Route: 048
     Dates: start: 20170404, end: 20180329
  2. IMBRUVICA [Suspect]
     Active Substance: IBRUTINIB
     Indication: NON-HODGKIN^S LYMPHOMA
     Route: 048
     Dates: start: 20180330
  3. ACYCLOVIR. [Concomitant]
     Active Substance: ACYCLOVIR
  4. IMBRUVICA [Suspect]
     Active Substance: IBRUTINIB
     Indication: CHRONIC LYMPHOCYTIC LEUKAEMIA
     Route: 048
     Dates: start: 20180330

REACTIONS (5)
  - Disease progression [Fatal]
  - Sepsis [Fatal]
  - Confusional state [Unknown]
  - Lethargy [Unknown]
  - Mental status changes [Unknown]

NARRATIVE: CASE EVENT DATE: 20180525
